FAERS Safety Report 10010005 (Version 3)
Quarter: 2014Q2

REPORT INFORMATION
  Report Type: Spontaneous
  Country: US (occurrence: US)
  Receive Date: 20140312
  Receipt Date: 20140611
  Transmission Date: 20141212
  Serious: No
  Sender: FDA-Public Use
  Company Number: US-INCYTE CORPORATION-2013IN000678

PATIENT
  Age: 74 Year
  Sex: Female

DRUGS (3)
  1. JAKAFI [Suspect]
     Indication: MYELOFIBROSIS
     Dosage: 5 MG, BID
     Route: 048
     Dates: start: 20130308
  2. ALLOPURINOL [Concomitant]
  3. PROCRIT [Concomitant]

REACTIONS (4)
  - Dry mouth [Unknown]
  - Flatulence [Unknown]
  - Vision blurred [Unknown]
  - Weight increased [Unknown]
